FAERS Safety Report 15185861 (Version 1)
Quarter: 2018Q3

REPORT INFORMATION
  Report Type: Spontaneous
  Country: US (occurrence: US)
  Receive Date: 20180723
  Receipt Date: 20180723
  Transmission Date: 20181010
  Serious: No
  Sender: FDA-Public Use
  Company Number: US-BAUSCH-BL-2018-009394

PATIENT
  Sex: Female

DRUGS (2)
  1. OPCON?A [Suspect]
     Active Substance: NAPHAZOLINE HYDROCHLORIDE\PHENIRAMINE MALEATE
     Indication: ERYTHEMA
     Route: 047
  2. OPCON?A [Suspect]
     Active Substance: NAPHAZOLINE HYDROCHLORIDE\PHENIRAMINE MALEATE
     Indication: HYPERSENSITIVITY

REACTIONS (1)
  - Drug ineffective [Unknown]
